FAERS Safety Report 5355789-4 (Version None)
Quarter: 2007Q2

REPORT INFORMATION
  Report Type: 
  Country: None (occurrence: None)
  Receive Date: 20070530
  Receipt Date: 20061009
  Transmission Date: 20071010
  Serious: Yes (Hospitalization)
  Sender: FDA-Public Use
  Company Number: US200610001613

PATIENT
  Sex: Male

DRUGS (2)
  1. ZYPREXA [Suspect]
     Dates: start: 20021227, end: 20040601
  2. PAXIL [Concomitant]

REACTIONS (2)
  - HALLUCINATION, AUDITORY [None]
  - SUICIDE ATTEMPT [None]
